FAERS Safety Report 8722360 (Version 2)
Quarter: 2012Q4

REPORT INFORMATION
  Report Type: 
  Country: JP (occurrence: JP)
  Receive Date: 20120814
  Receipt Date: 20121114
  Transmission Date: 20130627
  Serious: Yes (Hospitalization)
  Sender: FDA-Public Use
  Company Number: JP-009507513-2012SP030757

PATIENT
  Age: 74 Year
  Sex: Female
  Weight: 65 kg

DRUGS (6)
  1. REBETOL [Suspect]
     Indication: HEPATITIS C
     Dosage: 400 mg, QD
     Route: 048
     Dates: start: 20120411, end: 20120415
  2. PEGINTRON [Suspect]
     Indication: HEPATITIS C
     Dosage: 0.76g/kg/week
     Route: 058
     Dates: start: 20120411, end: 20120411
  3. TELAVIC [Suspect]
     Indication: HEPATITIS C
     Dosage: 2250 mg, qd
     Route: 048
     Dates: start: 20120411, end: 20120413
  4. TELAVIC [Suspect]
     Dosage: 1500 mg, qd
     Route: 048
     Dates: start: 20120414, end: 20120415
  5. URSO [Concomitant]
     Indication: HEPATITIS C
     Dosage: FORMULATION: POR
     Route: 048
  6. URSO [Concomitant]
     Route: 048

REACTIONS (1)
  - Blood creatinine increased [Recovered/Resolved]
